FAERS Safety Report 8687973 (Version 2)
Quarter: 2013Q2

REPORT INFORMATION
  Report Type: Spontaneous
  Country: US (occurrence: US)
  Receive Date: 20120727
  Receipt Date: 20130520
  Transmission Date: 20140414
  Serious: No
  Sender: FDA-Public Use
  Company Number: US-009507513-1207USA005908

PATIENT
  Age: 63 Year
  Sex: Female

DRUGS (5)
  1. SINGULAIR [Suspect]
     Indication: PNEUMONIA
     Dosage: 10 MG, QD
     Route: 048
     Dates: start: 20120707, end: 20120712
  2. WELLBUTRIN [Concomitant]
  3. LIPITOR [Concomitant]
  4. SYNTHROID [Concomitant]
  5. PRINIVIL [Concomitant]

REACTIONS (1)
  - Insomnia [Recovered/Resolved]
